FAERS Safety Report 5047864-9 (Version None)
Quarter: 2006Q3

REPORT INFORMATION
  Report Type: 
  Country: None (occurrence: None)
  Receive Date: 20060706
  Receipt Date: 20060706
  Transmission Date: 20061208
  Serious: Yes (Hospitalization)
  Sender: FDA-Public Use
  Company Number: None

PATIENT
  Age: 79 Year
  Sex: Male
  Weight: 48.5349 kg

DRUGS (19)
  1. LISINOPRIL [Suspect]
     Indication: HYPERTENSION
     Dosage: 5 MG     DAILY    PO
     Route: 048
  2. PAROXETINE HCL [Concomitant]
  3. DILANTIN [Concomitant]
  4. VALPROIC ACID [Concomitant]
  5. MIRTAZAPINE [Concomitant]
  6. ALBUTEROL [Concomitant]
  7. TERAZOSIN HCL [Concomitant]
  8. POTASSIUM CHLORIDE [Concomitant]
  9. METOPROLOL TARTRATE [Concomitant]
  10. IPRATROPIUM NEB [Concomitant]
  11. FUROSEMIDE [Concomitant]
  12. FOLIC ACID [Concomitant]
  13. FLUNISOLIDE MDI [Concomitant]
  14. FERROUS SULFATE TAB [Concomitant]
  15. ASPIRIN [Concomitant]
  16. ALBUTEROL NEB [Concomitant]
  17. SUCRALFATE [Concomitant]
  18. IPRATROPIUM BROMIDE MDI [Concomitant]
  19. DOCUSATE [Concomitant]

REACTIONS (2)
  - ANGIONEUROTIC OEDEMA [None]
  - INFECTION [None]
